FAERS Safety Report 7630251-4 (Version None)
Quarter: 2011Q3

REPORT INFORMATION
  Report Type: 
  Country: None (occurrence: None)
  Receive Date: 20110722
  Receipt Date: 20110711
  Transmission Date: 20111222
  Serious: Yes (Hospitalization, Other)
  Sender: FDA-Public Use
  Company Number: US-BAYER-2011-018436

PATIENT
  Age: 42 Year
  Sex: Female
  Weight: 105.22 kg

DRUGS (7)
  1. YAZ [Suspect]
     Indication: CONTRACEPTION
     Dosage: UNK
     Dates: start: 20090601, end: 20090801
  2. ADVAIR DISKUS 100/50 [Concomitant]
  3. LEXAPRO [Concomitant]
     Indication: DEPRESSION
     Dosage: 10 MG, QD
  4. HYDROCODONE BITARTRATE AND ACETAMINOPHEN [Concomitant]
  5. PREDNISONE [Concomitant]
  6. LEXAPRO [Concomitant]
     Dosage: 10 MG, QD
  7. VICODIN [Concomitant]

REACTIONS (3)
  - PULMONARY EMBOLISM [None]
  - EMOTIONAL DISTRESS [None]
  - PAIN [None]
